FAERS Safety Report 9183029 (Version 1)
Quarter: 2013Q1

REPORT INFORMATION
  Report Type: Spontaneous
  Country: US (occurrence: US)
  Receive Date: 20130322
  Receipt Date: 20130322
  Transmission Date: 20140127
  Serious: Yes (Other)
  Sender: FDA-Public Use
  Company Number: US-BRISTOL-MYERS SQUIBB COMPANY-16859209

PATIENT
  Age: 71 Year
  Sex: Male
  Weight: 65.76 kg

DRUGS (1)
  1. ERBITUX [Suspect]
     Indication: TONGUE NEOPLASM MALIGNANT STAGE UNSPECIFIED
     Dosage: RECEIVED THERAPY IN SETS OF 3.CANCER RETURNED WITH METASTASES TO HIS NECK

REACTIONS (6)
  - Malignant neoplasm progression [Unknown]
  - Weight decreased [Unknown]
  - Nausea [Unknown]
  - Vomiting [Unknown]
  - Malaise [Unknown]
  - Alopecia [Unknown]
